FAERS Safety Report 9357834 (Version 1)
Quarter: 2013Q2

REPORT INFORMATION
  Report Type: Spontaneous
  Country: ES (occurrence: ES)
  Receive Date: 20130620
  Receipt Date: 20130620
  Transmission Date: 20140414
  Serious: Yes (Other)
  Sender: FDA-Public Use
  Company Number: ES-ASTELLAS-2013EU005033

PATIENT
  Age: 59 Year
  Sex: Female

DRUGS (8)
  1. TACROLIMUS SYSTEMIC [Suspect]
     Indication: LIVER TRANSPLANT
     Dosage: UNK
     Route: 048
  2. MYCOPHENOLATE MOFETIL [Suspect]
     Indication: LIVER TRANSPLANT
     Dosage: UNK
     Route: 048
  3. CYCLOSPORINE [Suspect]
     Indication: LIVER TRANSPLANT
     Dosage: UNK
     Route: 048
  4. DEFLAZACORT [Concomitant]
     Dosage: 3 MG, UNKNOWN/D
     Route: 065
  5. OMEPRAZOLE [Concomitant]
     Dosage: 20 MG, UNKNOWN/D
     Route: 065
  6. ENTECAVIR [Concomitant]
     Dosage: 0.5 MG, UNKNOWN/D
     Route: 065
  7. CO-TRIMOXAZOLE [Concomitant]
     Dosage: 800 MG, UNKNOWN/D
     Route: 065
  8. VORICONAZOLE [Concomitant]
     Indication: FUNGAL INFECTION
     Dosage: 200 MG
     Route: 042

REACTIONS (1)
  - Drug intolerance [Unknown]
